FAERS Safety Report 8440151-8 (Version None)
Quarter: 2012Q2

REPORT INFORMATION
  Report Type: 
  Country: None (occurrence: None)
  Receive Date: 20120615
  Receipt Date: 20120612
  Transmission Date: 20120825
  Serious: Yes (Other)
  Sender: FDA-Public Use
  Company Number: US-ROCHE-1009157

PATIENT
  Sex: Male
  Weight: 106.69 kg

DRUGS (5)
  1. ZELBORAF [Suspect]
     Indication: METASTATIC MALIGNANT MELANOMA
     Route: 048
     Dates: start: 20110101
  2. KLONOPIN [Suspect]
     Indication: PRODUCT USED FOR UNKNOWN INDICATION
     Route: 048
     Dates: start: 20110101
  3. CYMBALTA [Concomitant]
     Route: 048
     Dates: start: 20120217
  4. KEPPRA [Concomitant]
     Route: 048
     Dates: start: 20110101
  5. DEXAMETHASONE [Concomitant]
     Route: 048
     Dates: start: 20110101

REACTIONS (9)
  - FATIGUE [None]
  - DIARRHOEA [None]
  - DYSPNOEA AT REST [None]
  - BRAIN NEOPLASM [None]
  - PAIN IN EXTREMITY [None]
  - JOINT SWELLING [None]
  - MELANOCYTIC NAEVUS [None]
  - DIZZINESS [None]
  - HYPERKERATOSIS [None]
